FAERS Safety Report 11536656 (Version 1)
Quarter: 2015Q3

REPORT INFORMATION
  Report Type: Spontaneous
  Country: US (occurrence: None)
  Receive Date: 20150921
  Receipt Date: 20150921
  Transmission Date: 20151125
  Serious: Yes (Life-Threatening)
  Sender: FDA-Public Use
  Company Number: None

PATIENT
  Age: 35 Year
  Sex: Male

DRUGS (2)
  1. QUETIAPINE 200 MG [Suspect]
     Active Substance: QUETIAPINE
     Indication: MOOD SWINGS
     Route: 048
     Dates: start: 20150717, end: 20150725
  2. TRAZODONE [Suspect]
     Active Substance: TRAZODONE HYDROCHLORIDE
     Indication: INSOMNIA
     Route: 048
     Dates: start: 20150717, end: 20150901

REACTIONS (9)
  - Aspartate aminotransferase increased [None]
  - Alanine aminotransferase increased [None]
  - Mean cell volume increased [None]
  - Mean cell haemoglobin increased [None]
  - Sinus tachycardia [None]
  - Haematocrit decreased [None]
  - Red blood cell count decreased [None]
  - Electrocardiogram QT prolonged [None]
  - Blood glucose decreased [None]

NARRATIVE: CASE EVENT DATE: 20150720
